FAERS Safety Report 6761097-7 (Version None)
Quarter: 2010Q2

REPORT INFORMATION
  Report Type: 
  Country: None (occurrence: None)
  Receive Date: 20100608
  Receipt Date: 20100602
  Transmission Date: 20101027
  Serious: Yes (Disabling)
  Sender: FDA-Public Use
  Company Number: CA-RB-026540-09

PATIENT
  Sex: Female

DRUGS (5)
  1. SUBUTEX [Suspect]
     Route: 065
  2. SUBUTEX [Suspect]
     Route: 065
  3. SUBUTEX [Suspect]
     Route: 065
  4. SUBUTEX [Suspect]
     Route: 060
  5. SUBOXONE [Suspect]
     Route: 065

REACTIONS (2)
  - COMPLICATION OF PREGNANCY [None]
  - DRUG EXPOSURE DURING PREGNANCY [None]
